FAERS Safety Report 5123535-5 (Version None)
Quarter: 2006Q3

REPORT INFORMATION
  Report Type: 
  Country: None (occurrence: None)
  Receive Date: 20060801
  Receipt Date: 20060425
  Transmission Date: 20061208
  Serious: Yes (Other)
  Sender: FDA-Public Use
  Company Number: 145522USA

PATIENT

DRUGS (3)
  1. GABAPENTIN [Suspect]
     Dates: start: 20060101, end: 20060101
  2. DOXEPIN HCL [Concomitant]
  3. ATENOLOL [Concomitant]

REACTIONS (5)
  - AKINESIA [None]
  - DEPRESSION [None]
  - DRUG INEFFECTIVE [None]
  - DYSPNOEA [None]
  - SUICIDAL IDEATION [None]
